FAERS Safety Report 6432729-8 (Version None)
Quarter: 2009Q4

REPORT INFORMATION
  Report Type: 
  Country: None (occurrence: None)
  Receive Date: 20091109
  Receipt Date: 20091028
  Transmission Date: 20100525
  Serious: Yes (Other)
  Sender: FDA-Public Use
  Company Number: FR-JNJFOC-20091005917

PATIENT
  Age: 40 Year
  Sex: Male

DRUGS (2)
  1. TOPALGIC [Suspect]
     Indication: BACK PAIN
     Route: 065
  2. TRAMADOL HCL [Suspect]
     Indication: DRUG USE FOR UNKNOWN INDICATION
     Route: 065

REACTIONS (4)
  - DRUG ABUSE [None]
  - OVERDOSE [None]
  - TIC [None]
  - WITHDRAWAL SYNDROME [None]
